FAERS Safety Report 9117379 (Version 1)
Quarter: 2013Q1

REPORT INFORMATION
  Report Type: Report from Study
  Country: US (occurrence: US)
  Receive Date: 20130129
  Receipt Date: 20130129
  Transmission Date: 20140127
  Serious: No
  Sender: FDA-Public Use
  Company Number: US-ABBOTT-12P-163-0937512-00

PATIENT
  Age: 47 Year
  Sex: Female

DRUGS (6)
  1. HUMIRA 40 MG/0.8 ML PEN [Suspect]
     Indication: PSORIASIS
     Dates: start: 20110901
  2. OXYCONTIN [Concomitant]
     Indication: CROHN^S DISEASE
  3. OXYCODONE [Concomitant]
     Indication: PAIN
     Dosage: 4-6 PER DAY
  4. OXYCODONE [Concomitant]
     Indication: CROHN^S DISEASE
  5. IMIPRAMINE [Concomitant]
     Indication: INFLAMMATION
     Dosage: AT BEDTIME
  6. ESTRADIOL [Concomitant]
     Indication: HORMONE REPLACEMENT THERAPY
     Dosage: 1MG DAILY

REACTIONS (2)
  - Drug dose omission [Recovered/Resolved]
  - Sinus headache [Recovered/Resolved]
